FAERS Safety Report 6300638-0 (Version None)
Quarter: 2009Q3

REPORT INFORMATION
  Report Type: 
  Country: None (occurrence: None)
  Receive Date: 20090803
  Receipt Date: 20090720
  Transmission Date: 20100115
  Serious: Yes (Other)
  Sender: FDA-Public Use
  Company Number: ADR7862009

PATIENT
  Age: 64 Year
  Sex: Female

DRUGS (1)
  1. ALENDRONIC ACID                 (MFR. UNKNOWN) [Suspect]
     Indication: BONE DENSITY DECREASED
     Dates: start: 20080101

REACTIONS (3)
  - DYSPEPSIA [None]
  - MALAISE [None]
  - THERAPEUTIC RESPONSE UNEXPECTED WITH DRUG SUBSTITUTION [None]
